FAERS Safety Report 4495832-8 (Version None)
Quarter: 2004Q4

REPORT INFORMATION
  Report Type: 
  Country: None (occurrence: None)
  Receive Date: 20041108
  Receipt Date: 20040923
  Transmission Date: 20050328
  Serious: Yes (Other)
  Sender: FDA-Public Use
  Company Number: AU-GLAXOSMITHKLINE-B0346620A

PATIENT
  Age: 77 Year
  Sex: Female

DRUGS (9)
  1. PAROXETINE HCL [Suspect]
     Indication: DEPRESSION
     Dosage: 40MG PER DAY
     Route: 048
     Dates: start: 20040301
  2. VIOXX [Concomitant]
     Dosage: 25MG PER DAY
     Route: 048
  3. TENORMIN [Concomitant]
  4. PLAVIX [Concomitant]
     Route: 048
  5. LIPITOR [Concomitant]
     Dosage: 40MG PER DAY
     Route: 048
  6. DUCENE [Concomitant]
     Dosage: .5U TWICE PER DAY
  7. CARDIZEM [Concomitant]
     Dosage: 360MG PER DAY
  8. ASTRIX [Concomitant]
  9. ASIG [Concomitant]
     Dosage: 20MG IN THE MORNING

REACTIONS (3)
  - HALLUCINATION, AUDITORY [None]
  - HALLUCINATION, VISUAL [None]
  - NIGHTMARE [None]
